FAERS Safety Report 4805649-X (Version None)
Quarter: 2005Q4

REPORT INFORMATION
  Report Type: 
  Country: None (occurrence: None)
  Receive Date: 20051021
  Receipt Date: 20051012
  Transmission Date: 20060501
  Serious: Yes (Other)
  Sender: FDA-Public Use
  Company Number: PHFR2005GB03379

PATIENT
  Age: 49 Year
  Sex: Male

DRUGS (3)
  1. CIPRALEX                                /DEN/ [Suspect]
  2. CLOZARIL [Suspect]
     Indication: SCHIZOPHRENIA
     Dosage: 450 MG/DAY
     Route: 048
     Dates: start: 20050711
  3. CLOZARIL [Suspect]
     Dosage: 1700 MG OVERDOSE
     Route: 048
     Dates: start: 20051008

REACTIONS (2)
  - HYPERSOMNIA [None]
  - OVERDOSE [None]
